FAERS Safety Report 22124417 (Version 1)
Quarter: 2023Q1

REPORT INFORMATION
  Report Type: Spontaneous
  Country: US (occurrence: US)
  Receive Date: 20230322
  Receipt Date: 20230322
  Transmission Date: 20230418
  Serious: Yes (Other)
  Sender: FDA-Public Use
  Company Number: US-GILEAD-2023-0620730

PATIENT
  Age: 29 Year
  Sex: Female

DRUGS (5)
  1. LETAIRIS [Suspect]
     Active Substance: AMBRISENTAN
     Indication: Pulmonary arterial hypertension
     Dosage: UNK
     Route: 065
  2. EPOPROSTENOL [Concomitant]
     Active Substance: EPOPROSTENOL
  3. NITRIC OXIDE [Concomitant]
     Active Substance: NITRIC OXIDE
  4. WARFARIN [Concomitant]
     Active Substance: WARFARIN
  5. TRANEXAMIC ACID [Concomitant]
     Active Substance: TRANEXAMIC ACID

REACTIONS (1)
  - Hypoxia [Not Recovered/Not Resolved]
